FAERS Safety Report 6598261-6 (Version None)
Quarter: 2010Q1

REPORT INFORMATION
  Report Type: 
  Country: None (occurrence: None)
  Receive Date: 20100224
  Receipt Date: 20050228
  Transmission Date: 20100710
  Serious: No
  Sender: FDA-Public Use
  Company Number: US-ALLERGAN-200502546

PATIENT
  Age: 42 Year
  Sex: Female

DRUGS (1)
  1. BOTOX COSMETIC [Suspect]
     Indication: SKIN WRINKLING
     Dosage: 72UNITS, SINGLE
     Route: 030
     Dates: start: 20040520

REACTIONS (3)
  - EYELID PTOSIS [None]
  - MUSCLE TWITCHING [None]
  - VISION BLURRED [None]
